FAERS Safety Report 11191771 (Version 1)
Quarter: 2015Q2

REPORT INFORMATION
  Report Type: Spontaneous
  Country: GB (occurrence: None)
  Receive Date: 20150612
  Receipt Date: 20150612
  Transmission Date: 20150821
  Serious: Yes (Other)
  Sender: FDA-Public Use
  Company Number: 2015HINREG0481

PATIENT
  Age: 55 Year
  Sex: Male
  Weight: 90 kg

DRUGS (30)
  1. ADDIPHOS [Concomitant]
     Active Substance: POTASSIUM HYDROXIDE\POTASSIUM PHOSPHATE, DIBASIC\SODIUM PHOSPHATE, DIBASIC, ANHYDROUS
  2. DALTEPARIN SODIUM [Concomitant]
     Active Substance: DALTEPARIN SODIUM
  3. INSULIN SOURCE UNSPECIFIED [Concomitant]
  4. MAGNESIUM [Concomitant]
     Active Substance: MAGNESIUM
  5. MINOXIDIL. [Concomitant]
     Active Substance: MINOXIDIL
  6. PARACETAMOL [Concomitant]
     Active Substance: ACETAMINOPHEN
  7. CHLORAMPHENICOL [Concomitant]
     Active Substance: CHLORAMPHENICOL
  8. FOLIC ACID. [Concomitant]
     Active Substance: FOLIC ACID
  9. HYDRALAZINE [Concomitant]
     Active Substance: HYDRALAZINE HYDROCHLORIDE
  10. LACTULOSE. [Concomitant]
     Active Substance: LACTULOSE
  11. MIRCERA [Concomitant]
     Active Substance: METHOXY POLYETHYLENE GLYCOL-EPOETIN BETA
  12. SENNA [Concomitant]
     Active Substance: SENNA LEAF\SENNOSIDES\SENNOSIDES A AND B
  13. SODIUM BICARBONATE. [Concomitant]
     Active Substance: SODIUM BICARBONATE
  14. ASCORBIC ACID. [Concomitant]
     Active Substance: ASCORBIC ACID
  15. GLICLACIDE [Concomitant]
  16. BISOPROLOL [Concomitant]
     Active Substance: BISOPROLOL
  17. CLOPIDOGREL [Concomitant]
     Active Substance: CLOPIDOGREL BISULFATE
  18. DOCUSATE [Concomitant]
     Active Substance: DOCUSATE
  19. LANSOPRAZOLE. [Concomitant]
     Active Substance: LANSOPRAZOLE
  20. SANDO-K [Concomitant]
     Active Substance: POTASSIUM BICARBONATE\POTASSIUM CHLORIDE
  21. ALFACALCIDOL [Concomitant]
     Active Substance: ALFACALCIDOL
  22. DEXMEDETOMIDINE [Concomitant]
     Active Substance: DEXMEDETOMIDINE
  23. DOXAZOSIN [Concomitant]
     Active Substance: DOXAZOSIN\DOXAZOSIN MESYLATE
  24. FENTANYL. [Concomitant]
     Active Substance: FENTANYL
  25. VENOFER [Concomitant]
     Active Substance: IRON SUCROSE
  26. AMLODIPINE [Concomitant]
     Active Substance: AMLODIPINE BESYLATE
  27. FUROSEMIDE. [Concomitant]
     Active Substance: FUROSEMIDE
  28. LORAZEPAM. [Concomitant]
     Active Substance: LORAZEPAM
  29. MEROPENEM. [Concomitant]
     Active Substance: MEROPENEM
  30. LEVETIRACTAM [Suspect]
     Active Substance: LEVETIRACETAM
     Indication: SEIZURE
     Dosage: 1000 MG, INTRAVENOUSLY, AND LATER ENTERALLY
     Route: 042
     Dates: start: 20150514, end: 20150515

REACTIONS (1)
  - Methaemoglobinaemia [None]

NARRATIVE: CASE EVENT DATE: 20150514
